FAERS Safety Report 4621707-7 (Version None)
Quarter: 2005Q1

REPORT INFORMATION
  Report Type: 
  Country: None (occurrence: None)
  Receive Date: 20050329
  Receipt Date: 20050322
  Transmission Date: 20050727
  Serious: Yes (Life-Threatening, Hospitalization)
  Sender: FDA-Public Use
  Company Number: AU-BOEHRINGER INGELHEIM PHARMACEUTICALS, INC.-2005-BP-04621AU

PATIENT
  Sex: Male

DRUGS (5)
  1. MOBIC [Suspect]
     Indication: OSTEOARTHRITIS
     Route: 048
     Dates: start: 20041031
  2. GLIBENCLAMIDE [Suspect]
     Indication: DIABETES MELLITUS
     Route: 048
  3. DIABEX [Suspect]
     Indication: DIABETES MELLITUS
     Route: 048
  4. FRUSEMIDE [Suspect]
     Indication: CARDIAC FAILURE
     Route: 048
  5. TRITACE [Suspect]
     Indication: ESSENTIAL HYPERTENSION
     Route: 048

REACTIONS (3)
  - HYPERKALAEMIA [None]
  - HYPOGLYCAEMIA [None]
  - RENAL FAILURE ACUTE [None]
